FAERS Safety Report 4499744-5 (Version None)
Quarter: 2004Q4

REPORT INFORMATION
  Report Type: 
  Country: None (occurrence: None)
  Receive Date: 20041112
  Receipt Date: 20041102
  Transmission Date: 20050328
  Serious: Yes (Hospitalization)
  Sender: FDA-Public Use
  Company Number: 200414176FR

PATIENT
  Age: 78 Year
  Sex: Female

DRUGS (10)
  1. KETEK [Suspect]
     Indication: SINUSITIS
     Route: 048
     Dates: start: 20040825
  2. DI-ANTALVIC [Suspect]
  3. MEDIATENSYL [Concomitant]
  4. EFFEXOR [Concomitant]
  5. TEMESTA [Concomitant]
  6. FORADIL [Concomitant]
  7. FLIXOTIDE [Concomitant]
  8. OROCAL [Concomitant]
  9. ACTONEL [Concomitant]
  10. HYZAAR [Concomitant]

REACTIONS (3)
  - LEUKOCYTOCLASTIC VASCULITIS [None]
  - NECROSIS [None]
  - OEDEMA PERIPHERAL [None]
